FAERS Safety Report 9641424 (Version 1)
Quarter: 2013Q4

REPORT INFORMATION
  Report Type: Spontaneous
  Country: US (occurrence: US)
  Receive Date: 20131023
  Receipt Date: 20131023
  Transmission Date: 20140711
  Serious: No
  Sender: FDA-Public Use
  Company Number: US-ABBVIE-13P-163-1147678-00

PATIENT
  Age: 51 Year
  Sex: Female
  Weight: 68.1 kg

DRUGS (4)
  1. LUPRON DEPOT [Suspect]
     Indication: UTERINE LEIOMYOMA
     Route: 030
     Dates: start: 2005, end: 2012
  2. AMBIEN [Concomitant]
     Indication: INSOMNIA
     Dosage: AT HOUR OF SLEEP
  3. ADVAIR [Concomitant]
     Indication: ASTHMA
     Dosage: INHALED DAILY IN THE MORNING
     Route: 055
  4. VITAMINS [Concomitant]
     Indication: PRODUCT USED FOR UNKNOWN INDICATION

REACTIONS (2)
  - Vaginal haemorrhage [Not Recovered/Not Resolved]
  - Off label use [Not Recovered/Not Resolved]
